FAERS Safety Report 9418093 (Version 2)
Quarter: 2013Q4

REPORT INFORMATION
  Report Type: Spontaneous
  Country: FR (occurrence: FR)
  Receive Date: 20130724
  Receipt Date: 20131001
  Transmission Date: 20140711
  Serious: Yes (Hospitalization)
  Sender: FDA-Public Use
  Company Number: FR-ASTRAZENECA-2013SE52821

PATIENT
  Age: 560 Month
  Sex: Female

DRUGS (7)
  1. INEXIUM [Suspect]
     Route: 048
     Dates: start: 201305
  2. EFFEXOR [Suspect]
     Route: 048
     Dates: start: 20130513
  3. ACUPAN [Suspect]
     Route: 048
     Dates: start: 201305
  4. EPITOMAX [Suspect]
     Dosage: FIRST WEEK: 25 MG PER DAY
     Route: 048
     Dates: start: 20130522
  5. EPITOMAX [Suspect]
     Dosage: SECOND WEEK: 25 MG TWO TIMES PER DAY
     Route: 048
  6. EPITOMAX [Suspect]
     Dosage: THIRD WEEK: 50 MG + 25 MG PER DAY
     Route: 048
  7. EPITOMAX [Suspect]
     Route: 048
     Dates: start: 20130612

REACTIONS (2)
  - Suicidal ideation [Recovered/Resolved]
  - Depression [Recovered/Resolved]
